FAERS Safety Report 9240604 (Version 1)
Quarter: 2013Q2

REPORT INFORMATION
  Report Type: Spontaneous
  Country: CN (occurrence: CN)
  Receive Date: 20130418
  Receipt Date: 20130418
  Transmission Date: 20140414
  Serious: Yes (Other)
  Sender: FDA-Public Use
  Company Number: CN-PFIZER INC-2013118088

PATIENT
  Age: 58 Year
  Sex: Female

DRUGS (1)
  1. FARLUTAL [Suspect]
     Indication: GASTRIC NEOPLASM
     Dosage: 1 TABLET PER TIME, ONCE DAILY
     Route: 048

REACTIONS (1)
  - Vaginal haemorrhage [Not Recovered/Not Resolved]
